FAERS Safety Report 23898849 (Version 1)
Quarter: 2024Q2

REPORT INFORMATION
  Report Type: Spontaneous
  Country: US (occurrence: US)
  Receive Date: 20240525
  Receipt Date: 20240525
  Transmission Date: 20240716
  Serious: Yes (Other)
  Sender: FDA-Public Use
  Company Number: US-UNITED THERAPEUTICS-UNT-2024-015453

PATIENT
  Age: 13 Year
  Sex: Female

DRUGS (3)
  1. REMODULIN [Suspect]
     Active Substance: TREPROSTINIL
     Indication: Malignant atrophic papulosis
     Dosage: UNK, CONTINUING
     Route: 058
  2. HEPARIN [Concomitant]
     Active Substance: HEPARIN SODIUM
     Indication: Malignant atrophic papulosis
     Dosage: UNK
     Route: 065
  3. ECULIZUMAB [Concomitant]
     Active Substance: ECULIZUMAB
     Indication: Malignant atrophic papulosis
     Dosage: UNK
     Route: 065

REACTIONS (4)
  - Gastrointestinal necrosis [Not Recovered/Not Resolved]
  - Malignant atrophic papulosis [Unknown]
  - Short-bowel syndrome [Unknown]
  - Off label use [Unknown]
